FAERS Safety Report 9688909 (Version 2)
Quarter: 2013Q4

REPORT INFORMATION
  Report Type: Spontaneous
  Country: FR (occurrence: None)
  Receive Date: 20131112
  Receipt Date: 20131217
  Transmission Date: 20140711
  Serious: Yes (Death, Hospitalization)
  Sender: FDA-Public Use
  Company Number: 2013000300

PATIENT
  Age: 83 Year
  Sex: Female

DRUGS (5)
  1. ACEON [Suspect]
     Indication: PRODUCT USED FOR UNKNOWN INDICATION
     Route: 048
     Dates: end: 20131005
  2. ARIMIDEX (ANASTROZOLE) [Suspect]
     Indication: PRODUCT USED FOR UNKNOWN INDICATION
     Route: 048
     Dates: start: 2010, end: 20131005
  3. TEMERIT [Suspect]
     Indication: PRODUCT USED FOR UNKNOWN INDICATION
     Route: 048
     Dates: end: 20131005
  4. FUROSEMIDE [Suspect]
     Indication: PRODUCT USED FOR UNKNOWN INDICATION
     Route: 048
     Dates: end: 20131005
  5. THYROXINE (LEVOTHYROXINE SODIUM) [Concomitant]

REACTIONS (9)
  - Hepatic cirrhosis [None]
  - Hepatitis [None]
  - Oedema peripheral [None]
  - Splenomegaly [None]
  - Hypoalbuminaemia [None]
  - Hypoxia [None]
  - Lymphocytosis [None]
  - Leukaemic infiltration hepatic [None]
  - Chronic lymphocytic leukaemia [None]
